FAERS Safety Report 9963660 (Version 1)
Quarter: 2014Q1

REPORT INFORMATION
  Report Type: Report from Study
  Country: US (occurrence: US)
  Receive Date: 20140305
  Receipt Date: 20140305
  Transmission Date: 20141002
  Serious: No
  Sender: FDA-Public Use
  Company Number: US-ABBVIE-13P-163-1117248-00

PATIENT
  Age: 67 Year
  Sex: Male

DRUGS (8)
  1. HUMIRA [Suspect]
     Indication: RHEUMATOID ARTHRITIS
     Dates: start: 20130614
  2. NABUMETONE [Concomitant]
     Indication: RHEUMATOID ARTHRITIS
  3. AMLODIPINE BENAZEPRIL [Concomitant]
     Indication: HYPERTENSION
     Dosage: 5/20 MG
  4. ZOCOR [Concomitant]
     Indication: BLOOD CHOLESTEROL ABNORMAL
  5. METHOTREXATE [Concomitant]
     Indication: RHEUMATOID ARTHRITIS
     Route: 058
  6. TRAMADOL [Concomitant]
     Indication: PAIN
     Dosage: 1 TO 2 TABLETS AS NEEDED
  7. AVODART [Concomitant]
     Indication: PROSTATOMEGALY
  8. FLOMAX [Concomitant]
     Indication: PROSTATOMEGALY

REACTIONS (1)
  - Drug ineffective [Not Recovered/Not Resolved]
